FAERS Safety Report 10752435 (Version 1)
Quarter: 2015Q1

REPORT INFORMATION
  Report Type: Spontaneous
  Country: US (occurrence: US)
  Receive Date: 20150130
  Receipt Date: 20150130
  Transmission Date: 20150721
  Serious: No
  Sender: FDA-Public Use
  Company Number: US-GLAXOSMITHKLINE-US2014GSK048340

PATIENT
  Age: 15 Year
  Sex: Male

DRUGS (1)
  1. EZOGABINE [Suspect]
     Active Substance: EZOGABINE
     Indication: SEIZURE
     Dosage: UNK, U

REACTIONS (1)
  - Drug ineffective [Unknown]
